FAERS Safety Report 4615282-0 (Version None)
Quarter: 2005Q1

REPORT INFORMATION
  Report Type: 
  Country: None (occurrence: None)
  Receive Date: 20050317
  Receipt Date: 20050304
  Transmission Date: 20050727
  Serious: Yes (Life-Threatening, Hospitalization)
  Sender: FDA-Public Use
  Company Number: 05USA0077

PATIENT
  Sex: 0

DRUGS (1)
  1. AGGRASTAT [Suspect]

REACTIONS (1)
  - CEREBRAL HAEMORRHAGE [None]
